FAERS Safety Report 25870058 (Version 2)
Quarter: 2025Q4

REPORT INFORMATION
  Report Type: Spontaneous
  Country: CN (occurrence: CN)
  Receive Date: 20251001
  Receipt Date: 20251002
  Transmission Date: 20260117
  Serious: Yes (Death, Other)
  Sender: INNOVIVA
  Company Number: CN-INNOVIVA SPECIALTY THERAPEUTICS-2025-ISTX-000183

PATIENT

DRUGS (1)
  1. XACDURO [Suspect]
     Active Substance: DURLOBACTAM SODIUM\SULBACTAM SODIUM
     Indication: Pneumonia acinetobacter
     Dosage: 1 DOSAGE FORM, Q8HR
     Route: 041
     Dates: start: 20250915

REACTIONS (2)
  - Pneumonia acinetobacter [Fatal]
  - Drug ineffective [Unknown]

NARRATIVE: CASE EVENT DATE: 20250901
